FAERS Safety Report 8902765 (Version 1)
Quarter: 2012Q4

REPORT INFORMATION
  Report Type: 
  Country: SE (occurrence: SE)
  Receive Date: 20121112
  Receipt Date: 20121112
  Transmission Date: 20130627
  Serious: Yes (Death, Hospitalization)
  Sender: FDA-Public Use
  Company Number: SE-SHIRE-ALL1-2012-05509

PATIENT
  Sex: Male

DRUGS (2)
  1. XAGRID [Suspect]
     Indication: THROMBOCYTOSIS
     Dosage: 0.5 mg, 1x/day:qd
     Route: 048
     Dates: start: 20120411, end: 20120806
  2. TROMBYL [Suspect]
     Indication: THROMBOCYTOSIS
     Dosage: UNK, Unknown
     Route: 065

REACTIONS (5)
  - Drug interaction [Fatal]
  - Cerebral haemorrhage [Fatal]
  - Intra-abdominal haemorrhage [Unknown]
  - Hepatic haemorrhage [Unknown]
  - Adrenal haemorrhage [Unknown]
